FAERS Safety Report 12772862 (Version 1)
Quarter: 2016Q3

REPORT INFORMATION
  Report Type: Spontaneous
  Country: AR (occurrence: AR)
  Receive Date: 20160922
  Receipt Date: 20160922
  Transmission Date: 20161109
  Serious: Yes (Hospitalization, Other)
  Sender: FDA-Public Use
  Company Number: AR-GLAXOSMITHKLINE-AR2016GSK133808

PATIENT
  Age: 15 Year

DRUGS (1)
  1. LAMOTRIGINE. [Suspect]
     Active Substance: LAMOTRIGINE
     Indication: EPILEPSY

REACTIONS (9)
  - Sepsis [Recovering/Resolving]
  - Escherichia infection [Recovering/Resolving]
  - Erythema [Recovering/Resolving]
  - Haemodynamic instability [Recovering/Resolving]
  - Myoclonic epilepsy [Unknown]
  - Rash vesicular [Recovering/Resolving]
  - Toxic epidermal necrolysis [Recovering/Resolving]
  - Pyrexia [Recovering/Resolving]
  - Pruritus [Recovering/Resolving]
